FAERS Safety Report 7970806-0 (Version None)
Quarter: 2011Q4

REPORT INFORMATION
  Report Type: 
  Country: None (occurrence: None)
  Receive Date: 20111212
  Receipt Date: 20111206
  Transmission Date: 20120403
  Serious: Yes (Other)
  Sender: FDA-Public Use
  Company Number: PHEH2011US011004

PATIENT
  Sex: Female

DRUGS (5)
  1. VENTOLIN [Concomitant]
     Indication: ASTHMA
     Dosage: UNK UKN, PRN
  2. DIVIGEL [Concomitant]
     Dosage: UNK UKN, UNK
  3. MEDROXYPROGESTERONE [Concomitant]
     Dosage: UNK UKN, UNK
  4. XOLAIR [Concomitant]
     Indication: ASTHMA
     Dosage: EVERY 2 WEEKS
  5. RECLAST [Suspect]
     Dosage: UNK UKN, UNK
     Route: 042

REACTIONS (2)
  - FEMUR FRACTURE [None]
  - FALL [None]
